FAERS Safety Report 7759661-1 (Version None)
Quarter: 2011Q3

REPORT INFORMATION
  Report Type: 
  Country: None (occurrence: None)
  Receive Date: 20110919
  Receipt Date: 20110909
  Transmission Date: 20111222
  Serious: Yes (Hospitalization)
  Sender: FDA-Public Use
  Company Number: GB-JNJFOC-20110502723

PATIENT
  Sex: Female
  Weight: 3.06 kg

DRUGS (2)
  1. IBUPROFEN [Concomitant]
     Indication: MATERNAL EXPOSURE DURING PREGNANCY
     Route: 065
  2. STELARA [Suspect]
     Indication: MATERNAL EXPOSURE DURING PREGNANCY
     Route: 064

REACTIONS (2)
  - FEEDING DISORDER [None]
  - WEIGHT DECREASED [None]
